FAERS Safety Report 5751597-0 (Version None)
Quarter: 2008Q2

REPORT INFORMATION
  Report Type: 
  Country: None (occurrence: None)
  Receive Date: 20080528
  Receipt Date: 20080519
  Transmission Date: 20081010
  Serious: Yes (Other)
  Sender: FDA-Public Use
  Company Number: PHHY2008BR08456

PATIENT
  Age: 39 Year
  Sex: Female
  Weight: 62 kg

DRUGS (2)
  1. PARLODEL [Suspect]
     Indication: BLOOD PROLACTIN DECREASED
     Route: 048
     Dates: start: 20080503
  2. PRIMOSISTON [Concomitant]
     Dosage: 1 TABLET/DAY FOR 20 DAYS, QD
     Dates: start: 20080513

REACTIONS (3)
  - DYSPAREUNIA [None]
  - HAEMORRHAGE [None]
  - UTERINE PAIN [None]
